FAERS Safety Report 7155920-4 (Version None)
Quarter: 2010Q4

REPORT INFORMATION
  Report Type: 
  Country: None (occurrence: None)
  Receive Date: 20101214
  Receipt Date: 20101130
  Transmission Date: 20110411
  Serious: Yes (Life-Threatening)
  Sender: FDA-Public Use
  Company Number: DE-CELGENEUS-062-50794-09100488

PATIENT
  Age: 68 Year
  Sex: Female
  Weight: 53.5 kg

DRUGS (7)
  1. VIDAZA [Suspect]
     Indication: ACUTE MYELOID LEUKAEMIA
     Route: 051
     Dates: start: 20090917, end: 20090921
  2. TAVANIC [Suspect]
     Indication: INFECTION PROPHYLAXIS
     Route: 048
     Dates: start: 20090905, end: 20091002
  3. ARA-C [Concomitant]
     Indication: ACUTE MYELOID LEUKAEMIA
     Route: 051
     Dates: start: 20090923, end: 20090929
  4. DAUNORUBICIN HCL [Concomitant]
     Indication: ACUTE MYELOID LEUKAEMIA
     Route: 051
     Dates: start: 20090925, end: 20090927
  5. ALLOPURINOL [Concomitant]
     Indication: PROPHYLAXIS
     Route: 048
     Dates: start: 20090905, end: 20091003
  6. KEVATRIL [Concomitant]
     Route: 051
     Dates: start: 20090917, end: 20091002
  7. AMLODIPINE [Concomitant]
     Indication: PROPHYLAXIS
     Route: 048
     Dates: end: 20091003

REACTIONS (2)
  - CARDIAC FAILURE [None]
  - HAEMOLYSIS [None]
